FAERS Safety Report 26150681 (Version 1)
Quarter: 2025Q4

REPORT INFORMATION
  Report Type: Spontaneous
  Country: CN (occurrence: CN)
  Receive Date: 20251212
  Receipt Date: 20251212
  Transmission Date: 20260117
  Serious: Yes (Other)
  Sender: Kenvue
  Company Number: CN-KENVUE-20251202677

PATIENT
  Age: 8 Year
  Weight: 25 kg

DRUGS (2)
  1. CHILDRENS MOTRIN [Suspect]
     Active Substance: IBUPROFEN
     Indication: Upper respiratory tract infection
     Dosage: 8 MILLILITER, SINGLE
  2. CHILDRENS MOTRIN [Suspect]
     Active Substance: IBUPROFEN
     Indication: Pyrexia

REACTIONS (4)
  - Abdominal pain [Recovering/Resolving]
  - Nausea [Recovering/Resolving]
  - Vomiting [Recovered/Resolved]
  - Erythema [Recovered/Resolved]
